FAERS Safety Report 24443528 (Version 2)
Quarter: 2024Q4

REPORT INFORMATION
  Report Type: Report from Study
  Country: US (occurrence: US)
  Receive Date: 20241016
  Receipt Date: 20241017
  Transmission Date: 20250115
  Serious: No
  Sender: ROCHE
  Company Number: US-ROCHE-1984066

PATIENT
  Age: 46 Year
  Sex: Female

DRUGS (1)
  1. RITUXAN [Suspect]
     Active Substance: RITUXIMAB
     Indication: Multiple sclerosis
     Dosage: 100, 500 MG SINGLE-USE VIAL? FREQUENCY TEXT:DAY 1 AND DAY 15
     Route: 042
     Dates: start: 20170426

REACTIONS (2)
  - Off label use [Unknown]
  - Pain [Unknown]
